FAERS Safety Report 7561111-5 (Version None)
Quarter: 2011Q2

REPORT INFORMATION
  Report Type: 
  Country: None (occurrence: None)
  Receive Date: 20110620
  Receipt Date: 20110620
  Transmission Date: 20111010
  Serious: No
  Sender: FDA-Public Use
  Company Number: None

PATIENT
  Sex: Male
  Weight: 86.4 kg

DRUGS (1)
  1. FENTANYL CITRATE [Suspect]
     Indication: PAIN
     Dosage: 25MCG EVERY 72 HRS TOPICALLY
     Route: 061
     Dates: start: 20100701

REACTIONS (3)
  - PRODUCT QUALITY ISSUE [None]
  - PRODUCT SUBSTITUTION ISSUE [None]
  - PRODUCT ADHESION ISSUE [None]
